FAERS Safety Report 18362804 (Version 1)
Quarter: 2020Q4

REPORT INFORMATION
  Report Type: Spontaneous
  Country: CN (occurrence: CN)
  Receive Date: 20201009
  Receipt Date: 20201009
  Transmission Date: 20210114
  Serious: Yes (Other)
  Sender: FDA-Public Use
  Company Number: CN-ROCHE-2692246

PATIENT
  Age: 65 Year
  Sex: Male

DRUGS (3)
  1. CARBOPLATIN. [Concomitant]
     Active Substance: CARBOPLATIN
     Dosage: AUC=4 FOR ONE CYCLE, AUC=5 FOR 5 CYCLES
     Route: 065
     Dates: start: 201604, end: 201608
  2. BEVACIZUMAB. [Suspect]
     Active Substance: BEVACIZUMAB
     Indication: LUNG ADENOCARCINOMA STAGE IV
     Dosage: 15 MG/KG
     Route: 065
     Dates: start: 201604, end: 201608
  3. BEVACIZUMAB. [Suspect]
     Active Substance: BEVACIZUMAB
     Dosage: 7.5 MG/KG
     Route: 065
     Dates: start: 20171115, end: 20191008

REACTIONS (4)
  - Asthenia [Unknown]
  - Back pain [Unknown]
  - Renal injury [Unknown]
  - Hypertension [Unknown]
